FAERS Safety Report 13321683 (Version 2)
Quarter: 2017Q2

REPORT INFORMATION
  Report Type: Spontaneous
  Country: IT (occurrence: IT)
  Receive Date: 20170310
  Receipt Date: 20170411
  Transmission Date: 20170830
  Serious: Yes (Hospitalization)
  Sender: FDA-Public Use
  Company Number: IT-PFIZER INC-2017100378

PATIENT
  Age: 68 Year
  Sex: Female
  Weight: 78 kg

DRUGS (3)
  1. ATORVASTATIN CALCIUM. [Suspect]
     Active Substance: ATORVASTATIN CALCIUM
     Indication: HYPERCHOLESTEROLAEMIA
     Dosage: 20 MG, DAILY
     Route: 048
     Dates: start: 20100406, end: 20170206
  2. LEVOPRAID /00314301/ [Concomitant]
     Active Substance: SULPIRIDE
     Dosage: 25 MG, UNK
     Dates: start: 20101129
  3. ESOPRAL /01479301/ [Concomitant]
     Dosage: 20 MG, UNK
     Dates: start: 20151027

REACTIONS (1)
  - Rhabdomyolysis [Recovering/Resolving]

NARRATIVE: CASE EVENT DATE: 20170206
